FAERS Safety Report 7141690-2 (Version None)
Quarter: 2010Q4

REPORT INFORMATION
  Report Type: 
  Country: None (occurrence: None)
  Receive Date: 20101207
  Receipt Date: 20101201
  Transmission Date: 20110411
  Serious: Yes (Other)
  Sender: FDA-Public Use
  Company Number: US-GENZYME-FABR-1001648

PATIENT

DRUGS (2)
  1. FABRAZYME [Suspect]
     Indication: FABRY'S DISEASE
     Dosage: 70 MG, UNK
     Route: 042
     Dates: start: 20091021, end: 20091204
  2. FABRAZYME [Suspect]
     Dosage: 105 MG, Q2W
     Route: 042
     Dates: start: 20031105, end: 20091021

REACTIONS (1)
  - RENAL DISORDER [None]
